FAERS Safety Report 14010195 (Version 1)
Quarter: 2017Q3

REPORT INFORMATION
  Report Type: Report from Study
  Country: None (occurrence: HU)
  Receive Date: 20170926
  Receipt Date: 20170926
  Transmission Date: 20171128
  Serious: Yes (Hospitalization)
  Sender: FDA-Public Use
  Company Number: HU-ABBVIE-17K-076-2112342-00

PATIENT
  Age: 68 Year
  Sex: Male

DRUGS (2)
  1. SASTRAVI [Concomitant]
     Indication: PARKINSON^S DISEASE
     Dosage: AT NIGHT
     Route: 048
  2. DUODOPA [Suspect]
     Active Substance: CARBIDOPA\LEVODOPA
     Indication: PARKINSON^S DISEASE
     Dosage: MORNING DOSE 10,4ML; CONTINUOUS DOSE 3,0ML/H;EXTRA DOSE 2,0ML
     Route: 050
     Dates: start: 20161201

REACTIONS (2)
  - Fall [Recovered/Resolved]
  - Femoral neck fracture [Not Recovered/Not Resolved]

NARRATIVE: CASE EVENT DATE: 20170919
